FAERS Safety Report 8645996 (Version 8)
Quarter: 2016Q3

REPORT INFORMATION
  Report Type: Spontaneous
  Country: US (occurrence: US)
  Receive Date: 20120702
  Receipt Date: 20160907
  Transmission Date: 20161109
  Serious: Yes (Hospitalization, Disabling, Other)
  Sender: FDA-Public Use
  Company Number: US-009507513-1206USA04699

PATIENT
  Sex: Female
  Weight: 84.81 kg

DRUGS (7)
  1. ALENDRONATE SODIUM. [Suspect]
     Active Substance: ALENDRONATE SODIUM
     Dosage: 70 MG, UNK
     Route: 065
     Dates: start: 20091013, end: 2010
  2. FOSAMAX [Suspect]
     Active Substance: ALENDRONATE SODIUM
     Indication: OSTEOMALACIA
  3. ALENDRONATE SODIUM. [Suspect]
     Active Substance: ALENDRONATE SODIUM
     Indication: OSTEOPOROSIS
     Dosage: 70 MG, UNK
     Route: 048
     Dates: start: 20100529
  4. FOSAMAX [Suspect]
     Active Substance: ALENDRONATE SODIUM
     Indication: OSTEOPOROSIS
     Dosage: 70 MG, QW
     Route: 048
     Dates: start: 200607, end: 201103
  5. ALENDRONATE SODIUM. [Suspect]
     Active Substance: ALENDRONATE SODIUM
     Indication: OSTEOPOROSIS
     Dosage: 70 MG, QW
     Route: 065
     Dates: start: 20081029
  6. ALENDRONATE SODIUM. [Suspect]
     Active Substance: ALENDRONATE SODIUM
     Dosage: 70 MG, UNK
     Route: 065
     Dates: start: 20090714, end: 2009
  7. RECLAST [Concomitant]
     Active Substance: ZOLEDRONIC ACID
     Indication: OSTEOPOROSIS
     Dosage: UNK
     Route: 013
     Dates: start: 201103, end: 201204

REACTIONS (39)
  - Chronic kidney disease [Not Recovered/Not Resolved]
  - Diabetes mellitus [Unknown]
  - Osteopenia [Unknown]
  - Arthritis [Unknown]
  - Joint contracture [Recovered/Resolved]
  - Medical device removal [Unknown]
  - Bone fragmentation [Unknown]
  - Arthritis [Unknown]
  - Internal fixation of fracture [Unknown]
  - Osteoporosis [Not Recovered/Not Resolved]
  - Arthropathy [Not Recovered/Not Resolved]
  - Glomerular filtration rate decreased [Unknown]
  - Tonsillectomy [Unknown]
  - Arthritis [Unknown]
  - Arthralgia [Unknown]
  - Off label use [Unknown]
  - Femur fracture [Not Recovered/Not Resolved]
  - Intramedullary rod insertion [Recovering/Resolving]
  - Hip arthroplasty [Unknown]
  - Stress fracture [Not Recovered/Not Resolved]
  - Patella fracture [Recovered/Resolved]
  - Joint effusion [Unknown]
  - Attention deficit/hyperactivity disorder [Unknown]
  - Open reduction of fracture [Unknown]
  - Fracture nonunion [Recovering/Resolving]
  - Rotator cuff syndrome [Unknown]
  - Hysterectomy [Unknown]
  - Colonoscopy [Unknown]
  - Fall [Recovering/Resolving]
  - Femoral neck fracture [Recovered/Resolved]
  - Calcium deficiency [Unknown]
  - Femoral neck fracture [Unknown]
  - Vitamin D deficiency [Unknown]
  - Arthropathy [Unknown]
  - Hypertension [Unknown]
  - Femoral neck fracture [Recovered/Resolved]
  - Low turnover osteopathy [Not Recovered/Not Resolved]
  - Blood creatinine increased [Unknown]
  - Treatment noncompliance [Unknown]

NARRATIVE: CASE EVENT DATE: 2006
